FAERS Safety Report 5611917-4 (Version None)
Quarter: 2008Q1

REPORT INFORMATION
  Report Type: 
  Country: None (occurrence: None)
  Receive Date: 20080131
  Receipt Date: 20080131
  Transmission Date: 20080703
  Serious: Yes (Disabling)
  Sender: FDA-Public Use
  Company Number: None

PATIENT
  Age: 87 Year
  Sex: Female

DRUGS (2)
  1. XIGRIS [Suspect]
     Indication: SEPSIS
     Dosage: 24 MCG/KG/HR IV DRIP
     Route: 041
     Dates: start: 20071016, end: 20071021
  2. HEPARIN [Suspect]
     Indication: THROMBOSIS PROPHYLAXIS
     Dosage: 5000 UNITS Q12H SQ
     Route: 058
     Dates: start: 20071019, end: 20071022

REACTIONS (1)
  - THROMBOCYTOPENIA [None]
